FAERS Safety Report 9664366 (Version 1)
Quarter: 2013Q4

REPORT INFORMATION
  Report Type: Spontaneous
  Country: US (occurrence: None)
  Receive Date: 20131030
  Receipt Date: 20131030
  Transmission Date: 20140711
  Serious: Yes (Hospitalization)
  Sender: FDA-Public Use
  Company Number: None

PATIENT
  Age: 71 Year
  Sex: Male
  Weight: 70.31 kg

DRUGS (1)
  1. COUMADIN [Suspect]
     Indication: ANTICOAGULANT THERAPY
     Dates: start: 20120701, end: 20131029

REACTIONS (6)
  - Fatigue [None]
  - Confusional state [None]
  - Haematochezia [None]
  - Pallor [None]
  - International normalised ratio increased [None]
  - Diverticulum intestinal haemorrhagic [None]
